FAERS Safety Report 5100676-X (Version None)
Quarter: 2006Q3

REPORT INFORMATION
  Report Type: 
  Country: None (occurrence: None)
  Receive Date: 20060906
  Receipt Date: 20060810
  Transmission Date: 20061208
  Serious: Yes (Other)
  Sender: FDA-Public Use
  Company Number: 2006RR-03424

PATIENT
  Age: 27 Year
  Sex: Female

DRUGS (2)
  1. ISOTRETINOIN [Suspect]
  2. CEPHALEXIN [Concomitant]

REACTIONS (3)
  - RECTAL HAEMORRHAGE [None]
  - THROMBOCYTOPENIA [None]
  - TRANSAMINASES INCREASED [None]
